FAERS Safety Report 10178570 (Version 6)
Quarter: 2014Q3

REPORT INFORMATION
  Report Type: Spontaneous
  Country: US (occurrence: US)
  Receive Date: 20140519
  Receipt Date: 20140728
  Transmission Date: 20150326
  Serious: Yes (Hospitalization)
  Sender: FDA-Public Use
  Company Number: US-SA-2014SA062879

PATIENT
  Age: 72 Year
  Sex: Female
  Weight: 60 kg

DRUGS (29)
  1. LUMIZYME [Suspect]
     Active Substance: ALGLUCOSIDASE ALFA
     Indication: RHEUMATOID ARTHRITIS
     Route: 042
     Dates: start: 20060829
  2. RECLAST [Concomitant]
     Active Substance: ZOLEDRONIC ACID
  3. LUMIZYME [Suspect]
     Active Substance: ALGLUCOSIDASE ALFA
     Indication: GLYCOGEN STORAGE DISEASE TYPE II
     Route: 042
     Dates: start: 20060829
  4. OXYGEN. [Concomitant]
     Active Substance: OXYGEN
  5. LUMIZYME [Suspect]
     Active Substance: ALGLUCOSIDASE ALFA
     Indication: GLYCOGEN STORAGE DISEASE TYPE II
     Route: 042
     Dates: start: 20060829
  6. LUMIZYME [Suspect]
     Active Substance: ALGLUCOSIDASE ALFA
     Indication: RHEUMATOID ARTHRITIS
     Route: 042
     Dates: start: 20060829
  7. ASPIRIN. [Concomitant]
     Active Substance: ASPIRIN
  8. LUMIZYME [Suspect]
     Active Substance: ALGLUCOSIDASE ALFA
     Indication: RHEUMATOID ARTHRITIS
     Route: 042
     Dates: start: 20060829
  9. NORMAL SALINE [Concomitant]
     Active Substance: SODIUM CHLORIDE
  10. VICODIN [Concomitant]
     Active Substance: ACETAMINOPHEN\HYDROCODONE BITARTRATE
  11. ADVAIR HFA [Concomitant]
     Active Substance: FLUTICASONE PROPIONATE\SALMETEROL XINAFOATE
  12. ALPRAZOLAM. [Concomitant]
     Active Substance: ALPRAZOLAM
  13. MECLIZINE [Concomitant]
     Active Substance: MECLIZINE\MECLIZINE HYDROCHLORIDE
  14. MULTIVITAMINS [Concomitant]
     Active Substance: VITAMINS
  15. PROTONIX [Concomitant]
     Active Substance: PANTOPRAZOLE SODIUM
  16. ACETAMINOPHEN. [Concomitant]
     Active Substance: ACETAMINOPHEN
  17. LUMIZYME [Suspect]
     Active Substance: ALGLUCOSIDASE ALFA
     Indication: GLYCOGEN STORAGE DISEASE TYPE II
     Route: 042
     Dates: start: 20060829
  18. LUMIZYME [Suspect]
     Active Substance: ALGLUCOSIDASE ALFA
     Indication: GLYCOGEN STORAGE DISEASE TYPE II
     Route: 042
     Dates: start: 20060829
  19. LUMIZYME [Suspect]
     Active Substance: ALGLUCOSIDASE ALFA
     Indication: RHEUMATOID ARTHRITIS
     Route: 042
     Dates: start: 20060829
  20. LUMIZYME [Suspect]
     Active Substance: ALGLUCOSIDASE ALFA
     Indication: GLYCOGEN STORAGE DISEASE TYPE II
     Route: 042
     Dates: start: 20060829
  21. CELEXA [Concomitant]
     Active Substance: CITALOPRAM HYDROBROMIDE
  22. DITROPAN [Concomitant]
     Active Substance: OXYBUTYNIN CHLORIDE
  23. REMICADE [Concomitant]
     Active Substance: INFLIXIMAB
  24. ERGOCALCIFEROL. [Concomitant]
     Active Substance: ERGOCALCIFEROL
  25. COUMADIN [Concomitant]
     Active Substance: WARFARIN SODIUM
  26. ZOFRAN [Concomitant]
     Active Substance: ONDANSETRON HYDROCHLORIDE
  27. LUMIZYME [Suspect]
     Active Substance: ALGLUCOSIDASE ALFA
     Indication: RHEUMATOID ARTHRITIS
     Route: 042
     Dates: start: 20060829
  28. CALCIUM/VITAMIN D [Concomitant]
     Active Substance: CALCIUM\VITAMIN D
  29. BYSTOLIC [Concomitant]
     Active Substance: NEBIVOLOL HYDROCHLORIDE

REACTIONS (3)
  - Fractured sacrum [Recovered/Resolved]
  - Off label use [Unknown]
  - Fall [Unknown]

NARRATIVE: CASE EVENT DATE: 20140420
